FAERS Safety Report 8939259 (Version 1)
Quarter: 2012Q4

REPORT INFORMATION
  Report Type: 
  Country: US (occurrence: US)
  Receive Date: 20121203
  Receipt Date: 20121203
  Transmission Date: 20130627
  Serious: Yes (Hospitalization)
  Sender: FDA-Public Use
  Company Number: US-ASTELLAS-2012US011567

PATIENT
  Age: 60 None
  Sex: Female

DRUGS (1)
  1. PROGRAF [Suspect]
     Indication: RENAL TRANSPLANT
     Dosage: 1 mg, bid
     Route: 048
     Dates: start: 20110923

REACTIONS (2)
  - Hip arthroplasty [Unknown]
  - Haematology test abnormal [Unknown]
